FAERS Safety Report 4749608-4 (Version None)
Quarter: 2005Q3

REPORT INFORMATION
  Report Type: 
  Country: None (occurrence: None)
  Receive Date: 20050822
  Receipt Date: 20050701
  Transmission Date: 20060218
  Serious: Yes (Hospitalization)
  Sender: FDA-Public Use
  Company Number: JP-MERCK-0507USA00744

PATIENT
  Age: 66 Year
  Sex: Female

DRUGS (8)
  1. PEPCID RPD [Suspect]
     Indication: GASTRITIS
     Route: 048
     Dates: start: 20050416, end: 20050621
  2. OLOPATADINE HYDROCHLORIDE [Suspect]
     Indication: PRURITUS
     Route: 048
     Dates: start: 20050406, end: 20050621
  3. BENET [Suspect]
     Indication: OSTEOPOROSIS
     Route: 048
     Dates: start: 20050504, end: 20050621
  4. AMOBAN [Suspect]
     Indication: INSOMNIA
     Route: 048
     Dates: start: 20050509, end: 20050621
  5. PRAVASTATIN [Suspect]
     Indication: HYPERCHOLESTEROLAEMIA
     Route: 048
     Dates: start: 20050601, end: 20050621
  6. COTRIM [Suspect]
     Indication: INFECTION PROPHYLAXIS
     Route: 048
     Dates: start: 20050418, end: 20050621
  7. PREDNISOLONE [Concomitant]
     Indication: DERMATOMYOSITIS
     Route: 048
     Dates: start: 20050416
  8. DEPAS [Concomitant]
     Indication: INSOMNIA
     Route: 048
     Dates: start: 20050510

REACTIONS (2)
  - AGRANULOCYTOSIS [None]
  - DERMATOMYOSITIS [None]
